FAERS Safety Report 4353214-3 (Version None)
Quarter: 2004Q2

REPORT INFORMATION
  Report Type: 
  Country: None (occurrence: None)
  Receive Date: 20040503
  Receipt Date: 20040503
  Transmission Date: 20050107
  Serious: No
  Sender: FDA-Public Use
  Company Number: None

PATIENT
  Age: 52 Year
  Sex: Male
  Weight: 77.7 kg

DRUGS (1)
  1. CEFTAZADINE [Suspect]
     Indication: URINARY TRACT INFECTION
     Dosage: 1 GM Q8 H IV
     Route: 042
     Dates: start: 20031211, end: 20031219

REACTIONS (1)
  - PYREXIA [None]
